FAERS Safety Report 16625414 (Version 1)
Quarter: 2019Q3

REPORT INFORMATION
  Report Type: Spontaneous
  Country: US (occurrence: US)
  Receive Date: 20190724
  Receipt Date: 20190724
  Transmission Date: 20191004
  Serious: Yes (Hospitalization)
  Sender: FDA-Public Use
  Company Number: None

PATIENT
  Age: 58 Year
  Sex: Female
  Weight: 100.8 kg

DRUGS (2)
  1. ADO-TRASTUZUMAB EMTANSINE 160 MG SOLR [Suspect]
     Active Substance: ADO-TRASTUZUMAB EMTANSINE
     Indication: BREAST CANCER METASTATIC
     Route: 042
     Dates: start: 20190701
  2. SODIUM CHLORIDE 0.9% [Concomitant]
     Active Substance: SODIUM CHLORIDE
     Dates: start: 20190701

REACTIONS (2)
  - Wheezing [None]
  - Dyspnoea [None]

NARRATIVE: CASE EVENT DATE: 20190701
